FAERS Safety Report 21626846 (Version 1)
Quarter: 2022Q4

REPORT INFORMATION
  Report Type: Spontaneous
  Country: US (occurrence: None)
  Receive Date: 20221121
  Receipt Date: 20221121
  Transmission Date: 20230113
  Serious: Yes (Other)
  Sender: FDA-Public Use
  Company Number: None

PATIENT
  Sex: Female

DRUGS (9)
  1. VERZENIO [Suspect]
     Active Substance: ABEMACICLIB
     Indication: Breast cancer
     Route: 048
     Dates: start: 20211025
  2. CALCIUM [Concomitant]
     Active Substance: CALCIUM
  3. EFFEXOR XR [Concomitant]
     Active Substance: VENLAFAXINE HYDROCHLORIDE
  4. FASLODEX INJ [Concomitant]
  5. GABAPENTIN TAB [Concomitant]
  6. MULTIVITAMIN TAB [Concomitant]
  7. PERCOCET TAB [Concomitant]
  8. TRAZODONE TAB [Concomitant]
  9. TYLENOL [Concomitant]
     Active Substance: ACETAMINOPHEN

REACTIONS (1)
  - Surgery [None]
